FAERS Safety Report 15209551 (Version 1)
Quarter: 2018Q3

REPORT INFORMATION
  Report Type: Spontaneous
  Country: US (occurrence: US)
  Receive Date: 20180727
  Receipt Date: 20180727
  Transmission Date: 20181010
  Serious: No
  Sender: FDA-Public Use
  Company Number: US-009507513-1807USA011034

PATIENT

DRUGS (1)
  1. ASMANEX HFA [Suspect]
     Active Substance: MOMETASONE FUROATE
     Dosage: ROUTE OF ADMINISTRATION: ORAL INHALATION
     Route: 055

REACTIONS (3)
  - Product use issue [Unknown]
  - Poor quality drug administered [Unknown]
  - No adverse event [Unknown]
